FAERS Safety Report 17085181 (Version 2)
Quarter: 2019Q4

REPORT INFORMATION
  Report Type: Spontaneous
  Country: CN (occurrence: CN)
  Receive Date: 20191127
  Receipt Date: 20191129
  Transmission Date: 20200122
  Serious: Yes (Other)
  Sender: FDA-Public Use
  Company Number: CN-VISTAPHARM, INC.-VER201911-001320

PATIENT
  Age: 24 Year
  Sex: Female

DRUGS (2)
  1. VALPROIC ACID. [Suspect]
     Active Substance: VALPROIC ACID
     Indication: EPILEPSY
     Dosage: 500 MG EVERY 12 HOURS
  2. CLONAZEPAM. [Suspect]
     Active Substance: CLONAZEPAM
     Indication: EPILEPSY
     Dosage: 2 MG EVERY 12 HOURS

REACTIONS (3)
  - Blood creatine phosphokinase increased [Unknown]
  - Myopathy toxic [Not Recovered/Not Resolved]
  - Drug interaction [Unknown]
